FAERS Safety Report 6307954-7 (Version None)
Quarter: 2009Q3

REPORT INFORMATION
  Report Type: 
  Country: None (occurrence: None)
  Receive Date: 20090813
  Receipt Date: 20090805
  Transmission Date: 20100115
  Serious: Yes (Hospitalization)
  Sender: FDA-Public Use
  Company Number: FR-ROCHE-648425

PATIENT
  Sex: Male

DRUGS (14)
  1. CELLCEPT [Suspect]
     Indication: NEPHROTIC SYNDROME
     Route: 048
     Dates: start: 20080101
  2. MABTHERA [Suspect]
     Indication: NEPHROTIC SYNDROME
     Dosage: RECEIVED 2 CYCLE
     Route: 042
     Dates: start: 20070201, end: 20080201
  3. MABTHERA [Suspect]
     Dosage: RECEIVED 2 CYCLE
     Route: 042
     Dates: start: 20080101, end: 20080101
  4. ALLOPURINOL [Suspect]
     Indication: DRUG USE FOR UNKNOWN INDICATION
     Route: 048
  5. ESIDRIX [Suspect]
     Indication: DRUG USE FOR UNKNOWN INDICATION
     Route: 048
  6. PRAZOSIN HCL [Suspect]
     Indication: DRUG USE FOR UNKNOWN INDICATION
     Route: 048
  7. EUPRESSYL [Suspect]
     Indication: DRUG USE FOR UNKNOWN INDICATION
     Route: 048
  8. OMEPRAZOLE [Suspect]
     Indication: DRUG USE FOR UNKNOWN INDICATION
     Route: 048
  9. PRINIVIL [Suspect]
     Indication: DRUG USE FOR UNKNOWN INDICATION
     Route: 048
  10. TORENTAL [Suspect]
     Indication: DRUG USE FOR UNKNOWN INDICATION
     Route: 048
  11. DEDROGYL [Suspect]
     Indication: DRUG USE FOR UNKNOWN INDICATION
     Route: 048
  12. CALTRATE [Suspect]
     Indication: DRUG USE FOR UNKNOWN INDICATION
     Route: 048
  13. CHLORAMINOPHENE [Concomitant]
     Indication: GLOMERULONEPHRITIS
     Dosage: INDICATION: EXTRA-MEMBRANOUS GLOMERULONEPHRITIS
  14. CYCLOPHOSPHAMIDE [Concomitant]
     Indication: GLOMERULONEPHRITIS

REACTIONS (1)
  - SARCOIDOSIS [None]
